FAERS Safety Report 5922008-7 (Version None)
Quarter: 2008Q4

REPORT INFORMATION
  Report Type: 
  Country: None (occurrence: None)
  Receive Date: 20081017
  Receipt Date: 20081009
  Transmission Date: 20090506
  Serious: Yes (Hospitalization)
  Sender: FDA-Public Use
  Company Number: A0750680A

PATIENT
  Age: 55 Year
  Sex: Female
  Weight: 83.1 kg

DRUGS (13)
  1. LAPATINIB [Suspect]
     Indication: BREAST CANCER
     Dosage: 1000MG PER DAY
     Route: 048
     Dates: start: 20080801
  2. HERCEPTIN [Suspect]
     Indication: BREAST CANCER
     Dosage: 2MGK WEEKLY
     Route: 042
     Dates: start: 20080801
  3. FEMARA [Concomitant]
     Dosage: 2.5MG PER DAY
     Route: 048
     Dates: start: 20080728
  4. ZOLADEX [Concomitant]
     Dosage: 3.6MG MONTHLY
     Route: 058
     Dates: start: 20080801
  5. ADVICOR [Concomitant]
     Dates: start: 20080923
  6. EFFEXOR [Concomitant]
  7. NEXIUM [Concomitant]
     Dosage: 20MG PER DAY
     Route: 048
     Dates: start: 20080819
  8. CLARITIN [Concomitant]
     Indication: MULTIPLE ALLERGIES
     Dosage: 10MG PER DAY
     Route: 048
     Dates: start: 20080826
  9. SUDAFED SINUS [Concomitant]
     Indication: MULTIPLE ALLERGIES
     Route: 048
     Dates: start: 20080826
  10. XANAX [Concomitant]
     Dosage: .25MG PER DAY
     Route: 048
     Dates: start: 20080826
  11. COMBIVENT [Concomitant]
     Indication: ASTHMA
     Dosage: 2PUFF FOUR TIMES PER DAY
     Route: 055
     Dates: start: 20080923
  12. SINGULAIR [Concomitant]
     Indication: ASTHMA
     Dosage: 10MG PER DAY
     Route: 048
     Dates: start: 20080923
  13. CHANTIX [Concomitant]
     Dosage: 1MG PER DAY
     Route: 048
     Dates: start: 20080923

REACTIONS (4)
  - ASTHMA [None]
  - COUGH [None]
  - DYSPNOEA [None]
  - WHEEZING [None]
